FAERS Safety Report 9457938 (Version 4)
Quarter: 2014Q3

REPORT INFORMATION
  Report Type: Spontaneous
  Country: US (occurrence: US)
  Receive Date: 20130814
  Receipt Date: 20140918
  Transmission Date: 20150326
  Serious: Yes (Hospitalization)
  Sender: FDA-Public Use
  Company Number: US-BAYER-2013-097993

PATIENT
  Age: 19 Year
  Sex: Female
  Weight: 104 kg

DRUGS (5)
  1. MIRENA [Suspect]
     Active Substance: LEVONORGESTREL
     Indication: CONTRACEPTION
     Dosage: 20 MCG/24HR, CONT
     Route: 015
     Dates: start: 20081009, end: 20121004
  2. MOTRIN [Concomitant]
     Active Substance: IBUPROFEN
  3. MELOXICAM. [Concomitant]
     Active Substance: MELOXICAM
     Dosage: 7.5 MG, AS NEEDED
  4. ZANTAC [Concomitant]
     Active Substance: RANITIDINE HYDROCHLORIDE
  5. LEVOTHYROXINE [Concomitant]
     Active Substance: LEVOTHYROXINE
     Dosage: 25 MCG TAB, 25 MCG DAILY
     Route: 048

REACTIONS (7)
  - Device issue [None]
  - Emotional distress [None]
  - Device dislocation [None]
  - Uterine perforation [None]
  - Pain [None]
  - Menstruation irregular [None]
  - Injury [None]

NARRATIVE: CASE EVENT DATE: 2008
